FAERS Safety Report 8419985-1 (Version None)
Quarter: 2012Q2

REPORT INFORMATION
  Report Type: 
  Country: None (occurrence: None)
  Receive Date: 20120607
  Receipt Date: 20120527
  Transmission Date: 20120825
  Serious: Yes (Other)
  Sender: FDA-Public Use
  Company Number: US-PURDUE-USA-2011-0062511

PATIENT
  Sex: Female
  Weight: 56.689 kg

DRUGS (5)
  1. SENOKOT [Suspect]
     Indication: CONSTIPATION
     Dosage: 4 TABLET, DAILY
     Route: 048
     Dates: start: 19860101
  2. SENOKOT [Suspect]
     Dosage: UNK
     Dates: start: 20120526
  3. SENOKOT [Suspect]
     Dosage: 5.5 TABLET, UNK
     Route: 048
     Dates: start: 20120408
  4. CHEMOTHERAPEUTICS [Suspect]
     Indication: LYMPHOMA
  5. SENOKOT [Suspect]
     Dosage: 1 TABLET, DAILY
     Route: 048

REACTIONS (7)
  - MEMORY IMPAIRMENT [None]
  - DRUG INEFFECTIVE [None]
  - COGNITIVE DISORDER [None]
  - DIARRHOEA [None]
  - NEOPLASM RECURRENCE [None]
  - NEOPLASM MALIGNANT [None]
  - LYMPHOMA [None]
